FAERS Safety Report 14979020 (Version 1)
Quarter: 2018Q2

REPORT INFORMATION
  Report Type: Report from Study
  Country: US (occurrence: US)
  Receive Date: 20180606
  Receipt Date: 20180606
  Transmission Date: 20180711
  Serious: Yes (Other)
  Sender: FDA-Public Use
  Company Number: US-TAKEDA-2018MPI006733

PATIENT

DRUGS (1)
  1. VELCADE [Suspect]
     Active Substance: BORTEZOMIB
     Indication: TRANSITIONAL CELL CARCINOMA
     Dosage: 1.3 MG/M2, UNK
     Route: 042

REACTIONS (1)
  - Neurotoxicity [Unknown]
